FAERS Safety Report 21172624 (Version 2)
Quarter: 2022Q3

REPORT INFORMATION
  Report Type: Spontaneous
  Country: US (occurrence: None)
  Receive Date: 20220804
  Receipt Date: 20220913
  Transmission Date: 20221027
  Serious: No
  Sender: FDA-Public Use
  Company Number: 2022A263319

PATIENT
  Age: 27324 Day
  Sex: Male
  Weight: 68 kg

DRUGS (2)
  1. BUDESONIDE\FORMOTEROL\GLYCOPYRRONIUM [Suspect]
     Active Substance: BUDESONIDE\FORMOTEROL\GLYCOPYRRONIUM
     Indication: Chronic obstructive pulmonary disease
     Dosage: 160MCG-9MCG-4.8MCG, 2 PUFFS 2 TIMES A DAY
     Route: 055
     Dates: start: 2022
  2. BUDESONIDE\FORMOTEROL\GLYCOPYRRONIUM [Suspect]
     Active Substance: BUDESONIDE\FORMOTEROL\GLYCOPYRRONIUM
     Indication: Emphysema
     Dosage: 160MCG-9MCG-4.8MCG, 2 PUFFS 2 TIMES A DAY
     Route: 055
     Dates: start: 2022

REACTIONS (3)
  - Emphysema [Not Recovered/Not Resolved]
  - Device use issue [Unknown]
  - Device malfunction [Unknown]

NARRATIVE: CASE EVENT DATE: 20220705
